FAERS Safety Report 9005984 (Version 1)
Quarter: 2013Q1

REPORT INFORMATION
  Report Type: Spontaneous
  Country: US (occurrence: US)
  Receive Date: 20130109
  Receipt Date: 20130109
  Transmission Date: 20140127
  Serious: Yes (Disabling, Other)
  Sender: FDA-Public Use
  Company Number: US-PFIZER INC-2013009961

PATIENT
  Sex: Male

DRUGS (2)
  1. NEURONTIN [Suspect]
     Indication: DIABETIC NEUROPATHY
     Dosage: 400 MG, 3X/DAY
     Route: 048
  2. NEURONTIN [Suspect]
     Dosage: 100 MG, 3X/DAY
     Route: 048

REACTIONS (4)
  - Renal failure [Unknown]
  - Cardiac disorder [Unknown]
  - Eye disorder [Unknown]
  - Neuropathy peripheral [Unknown]
